FAERS Safety Report 21107130 (Version 2)
Quarter: 2022Q3

REPORT INFORMATION
  Report Type: Spontaneous
  Country: AR (occurrence: AR)
  Receive Date: 20220720
  Receipt Date: 20220906
  Transmission Date: 20221026
  Serious: Yes (Other)
  Sender: FDA-Public Use
  Company Number: AR-PFIZER INC-202200822295

PATIENT
  Age: 69 Year
  Sex: Female

DRUGS (4)
  1. IBRANCE [Suspect]
     Active Substance: PALBOCICLIB
     Indication: Breast cancer metastatic
     Dosage: 75 MG, CYCLIC (DAILY, SCHEME 3X1)
     Dates: start: 20190416
  2. IBRANCE [Suspect]
     Active Substance: PALBOCICLIB
     Dosage: 75 MG, CYCLIC (DAILY, SCHEME 3X1)
     Dates: end: 20220622
  3. IBRANCE [Suspect]
     Active Substance: PALBOCICLIB
     Dosage: 75 MG, CYCLIC (DAILY, SCHEME 3X1)
     Dates: start: 20190416
  4. LETROZOLE [Concomitant]
     Active Substance: LETROZOLE
     Indication: Breast cancer metastatic
     Dosage: UNK

REACTIONS (7)
  - Psoriasis [Not Recovered/Not Resolved]
  - Vein rupture [Unknown]
  - Psoriatic arthropathy [Unknown]
  - Skin swelling [Not Recovered/Not Resolved]
  - Rheumatic disorder [Not Recovered/Not Resolved]
  - Decreased immune responsiveness [Unknown]
  - Pain [Unknown]

NARRATIVE: CASE EVENT DATE: 20220801
